FAERS Safety Report 8956413 (Version 1)
Quarter: 2012Q4

REPORT INFORMATION
  Report Type: 
  Country: ES (occurrence: ES)
  Receive Date: 20121210
  Receipt Date: 20121210
  Transmission Date: 20130627
  Serious: Yes (Hospitalization)
  Sender: FDA-Public Use
  Company Number: ES-TEVA-373246ISR

PATIENT

DRUGS (2)
  1. PACLITAXEL [Suspect]
     Dosage: 170 Milligram Daily; 4 cycles every 3 weeks then weekly treatment
     Route: 065
     Dates: end: 20121113
  2. ALPRAZOLAM [Concomitant]

REACTIONS (7)
  - Acute respiratory failure [Unknown]
  - Interstitial lung disease [Unknown]
  - Pyrexia [Unknown]
  - Ear pain [Unknown]
  - Dyspnoea [Unknown]
  - Cough [Unknown]
  - Haemoglobin decreased [None]
